FAERS Safety Report 6476512-6 (Version None)
Quarter: 2009Q4

REPORT INFORMATION
  Report Type: 
  Country: None (occurrence: None)
  Receive Date: 20091207
  Receipt Date: 20091106
  Transmission Date: 20100525
  Serious: No
  Sender: FDA-Public Use
  Company Number: US-BAYER-200934767NA

PATIENT
  Age: 73 Year
  Sex: Male
  Weight: 104 kg

DRUGS (2)
  1. LEVITRA [Suspect]
     Indication: ERECTILE DYSFUNCTION
     Dosage: UNIT DOSE: 20 MG
  2. LEVITRA [Suspect]
     Dosage: UNIT DOSE: 20 MG

REACTIONS (2)
  - ADVERSE EVENT [None]
  - NO ADVERSE EVENT [None]
